FAERS Safety Report 15904683 (Version 1)
Quarter: 2019Q1

REPORT INFORMATION
  Report Type: Report from Study
  Country: ES (occurrence: ES)
  Receive Date: 20190204
  Receipt Date: 20190204
  Transmission Date: 20190417
  Serious: Yes (Other)
  Sender: FDA-Public Use
  Company Number: ES-ROCHE-2257102

PATIENT

DRUGS (1)
  1. RITUXIMAB. [Suspect]
     Active Substance: RITUXIMAB
     Indication: RELAPSING-REMITTING MULTIPLE SCLEROSIS
     Dosage: ON DAY 1 AND 15?ADMINISTERED TWICE
     Route: 042

REACTIONS (4)
  - Deep vein thrombosis [Recovered/Resolved]
  - Pulmonary embolism [Recovered/Resolved]
  - Intentional product use issue [Unknown]
  - Off label use [Unknown]
